FAERS Safety Report 9774580 (Version 2)
Quarter: 2013Q4

REPORT INFORMATION
  Report Type: Spontaneous
  Country: US (occurrence: US)
  Receive Date: 20131220
  Receipt Date: 20131223
  Transmission Date: 20140711
  Serious: Yes (Other)
  Sender: FDA-Public Use
  Company Number: US-FRI-1000052329

PATIENT
  Age: 21 Year
  Sex: Female
  Weight: 64 kg

DRUGS (4)
  1. TEFLARO [Suspect]
     Indication: STAPHYLOCOCCAL INFECTION
     Dosage: 1200 MG
     Route: 042
     Dates: start: 20131030, end: 20131122
  2. TEFLARO [Suspect]
     Indication: MASTOIDITIS
  3. FLUTICASONE [Concomitant]
  4. IMPLANON [Concomitant]
     Indication: CONTRACEPTION

REACTIONS (5)
  - Leukopenia [Recovered/Resolved]
  - Deep vein thrombosis [Unknown]
  - Aspartate aminotransferase increased [Recovered/Resolved]
  - Alanine aminotransferase increased [Recovered/Resolved]
  - Off label use [Recovered/Resolved]
